FAERS Safety Report 12383867 (Version 2)
Quarter: 2016Q3

REPORT INFORMATION
  Report Type: Spontaneous
  Country: PE (occurrence: PE)
  Receive Date: 20160519
  Receipt Date: 20160902
  Transmission Date: 20161109
  Serious: Yes (Other)
  Sender: FDA-Public Use
  Company Number: PE-PFIZER INC-2016257804

PATIENT
  Age: 84 Year
  Sex: Male

DRUGS (1)
  1. XALATAN [Suspect]
     Active Substance: LATANOPROST
     Dosage: 1 GTT ON EACH EYE, DAILY
     Route: 047
     Dates: start: 2011

REACTIONS (6)
  - Glaucoma [Unknown]
  - Eye pain [Recovered/Resolved]
  - Drug dose omission [Recovered/Resolved]
  - Headache [Recovered/Resolved]
  - Intraocular pressure increased [Unknown]
  - Blindness unilateral [Unknown]
